FAERS Safety Report 6430832-X (Version None)
Quarter: 2009Q4

REPORT INFORMATION
  Report Type: 
  Country: None (occurrence: None)
  Receive Date: 20091105
  Receipt Date: 20091105
  Transmission Date: 20100525
  Serious: Yes (Life-Threatening, Disabling, Other)
  Sender: FDA-Public Use
  Company Number: None

PATIENT
  Age: 58 Year
  Sex: Male
  Weight: 115.6672 kg

DRUGS (1)
  1. VENLAFAXINE HCL EXTENDED-RELEASE [Suspect]
     Indication: DEPRESSION
     Dosage: 75 MG 1X 7 DAYS THEN TO 75 MG 2X 23 DAYS
     Dates: start: 20090910

REACTIONS (8)
  - ABDOMINAL DISCOMFORT [None]
  - DIZZINESS [None]
  - FALL [None]
  - GAIT DISTURBANCE [None]
  - HYPOAESTHESIA [None]
  - NERVE INJURY [None]
  - PARAESTHESIA [None]
  - WEIGHT INCREASED [None]
